FAERS Safety Report 5840703-5 (Version None)
Quarter: 2008Q3

REPORT INFORMATION
  Report Type: 
  Country: None (occurrence: None)
  Receive Date: 20080811
  Receipt Date: 20080728
  Transmission Date: 20090109
  Serious: Yes (Life-Threatening)
  Sender: FDA-Public Use
  Company Number: FR-PFIZER INC-2008015873

PATIENT
  Sex: Female
  Weight: 20 kg

DRUGS (3)
  1. SOLU-MEDROL [Suspect]
     Indication: AUTOIMMUNE HEPATITIS
     Route: 042
  2. CELLCEPT [Suspect]
     Indication: AUTOIMMUNE HEPATITIS
     Route: 042
     Dates: start: 20071109, end: 20071125
  3. CYCLOSPORINE [Suspect]
     Indication: AUTOIMMUNE HEPATITIS
     Route: 042

REACTIONS (2)
  - SMALL INTESTINAL PERFORATION [None]
  - STAPHYLOCOCCAL SEPSIS [None]
